FAERS Safety Report 8439842-4 (Version None)
Quarter: 2012Q2

REPORT INFORMATION
  Report Type: 
  Country: None (occurrence: None)
  Receive Date: 20120615
  Receipt Date: 20120607
  Transmission Date: 20120825
  Serious: Yes (Hospitalization, Other)
  Sender: FDA-Public Use
  Company Number: CA-SANOFI-AVENTIS-2012SA033930

PATIENT
  Age: 75 Year
  Sex: Male
  Weight: 64 kg

DRUGS (13)
  1. BISOPROLOL FUMARATE [Concomitant]
     Indication: HYPERTENSION
     Route: 048
     Dates: start: 20050801
  2. PREDNISONE TAB [Suspect]
     Indication: PROSTATE CANCER
     Route: 048
     Dates: start: 20111208
  3. LUPRON [Concomitant]
     Indication: CANCER PAIN
     Route: 030
  4. ACETAMINOPHEN [Concomitant]
     Indication: CANCER PAIN
     Route: 048
     Dates: start: 20090101
  5. NITROGLYCERIN [Concomitant]
     Indication: ANGINA PECTORIS
     Dates: start: 20080101
  6. ASPIRIN [Concomitant]
     Indication: CARDIOVASCULAR EVENT PROPHYLAXIS
     Route: 048
     Dates: start: 20050801
  7. ZOPICLONE [Concomitant]
     Indication: INSOMNIA
     Route: 048
     Dates: start: 20050101
  8. CABAZITAXEL [Suspect]
     Indication: PROSTATE CANCER
     Route: 041
     Dates: start: 20111215, end: 20111215
  9. CABAZITAXEL [Suspect]
     Route: 041
     Dates: start: 20120426, end: 20120426
  10. ROSUVASTATIN [Concomitant]
     Route: 048
     Dates: start: 20050801
  11. CALCIUM/VITAMIN D [Concomitant]
     Indication: OSTEOPOROSIS PROPHYLAXIS
     Dosage: 500 MG + 400 IU
     Dates: start: 20080101
  12. MAVIK [Concomitant]
     Indication: HYPERTENSION
     Route: 048
     Dates: start: 20050801
  13. PROPOXYPHENE NAPSYLATE W/ ACETAMINOPHEN [Concomitant]
     Indication: CANCER PAIN
     Dosage: 500 MG/200
     Route: 048
     Dates: start: 20080101

REACTIONS (1)
  - MYOCARDIAL INFARCTION [None]
